FAERS Safety Report 12840606 (Version 1)
Quarter: 2016Q4

REPORT INFORMATION
  Report Type: Report from Study
  Country: AU (occurrence: AU)
  Receive Date: 20161012
  Receipt Date: 20161012
  Transmission Date: 20170207
  Serious: Yes (Death)
  Sender: FDA-Public Use
  Company Number: AU-ASTRAZENECA-2016SF06775

PATIENT
  Sex: Male

DRUGS (1)
  1. ZOLADEX [Suspect]
     Active Substance: GOSERELIN ACETATE
     Dosage: 10.8MG UNKNOWN
     Route: 058

REACTIONS (1)
  - Death [Fatal]
